FAERS Safety Report 4747903-6 (Version None)
Quarter: 2005Q3

REPORT INFORMATION
  Report Type: 
  Country: None (occurrence: None)
  Receive Date: 20050818
  Receipt Date: 20041014
  Transmission Date: 20060218
  Serious: Yes (Other)
  Sender: FDA-Public Use
  Company Number: US-AMGEN-US090702

PATIENT
  Sex: Male

DRUGS (7)
  1. EPOGEN [Suspect]
     Indication: DIALYSIS
     Route: 042
     Dates: start: 20010501
  2. BLOOD CELLS, PACKED HUMAN [Concomitant]
     Dates: start: 20040624, end: 20050317
  3. TRENTAL [Concomitant]
     Route: 048
     Dates: start: 20040831
  4. PEPCID [Concomitant]
     Route: 048
     Dates: start: 20040622
  5. NEPHRO-CAPS [Concomitant]
     Route: 048
     Dates: start: 20031023
  6. METOPROLOL [Concomitant]
     Route: 048
     Dates: start: 20031023
  7. RENAGEL [Concomitant]
     Route: 048
     Dates: start: 20031023

REACTIONS (2)
  - ANTI-ERYTHROPOIETIN ANTIBODY POSITIVE [None]
  - THERAPEUTIC RESPONSE DECREASED [None]
